FAERS Safety Report 20919750 (Version 2)
Quarter: 2022Q2

REPORT INFORMATION
  Report Type: Report from Study
  Country: US (occurrence: US)
  Receive Date: 20220606
  Receipt Date: 20220620
  Transmission Date: 20220721
  Serious: Yes (Hospitalization)
  Sender: FDA-Public Use
  Company Number: US-PFIZER INC-202200789517

PATIENT
  Sex: Female
  Weight: 54.43 kg

DRUGS (8)
  1. INOTUZUMAB OZOGAMICIN [Suspect]
     Active Substance: INOTUZUMAB OZOGAMICIN
     Indication: Acute lymphocytic leukaemia
     Dosage: TOTAL DOSE ADMINISTERED THIS COURSE: 0 MG
     Dates: start: 20220316, end: 20220428
  2. VINCRISTINE SULFATE [Suspect]
     Active Substance: VINCRISTINE SULFATE
     Indication: Acute lymphocytic leukaemia
     Dosage: TOTAL DOSE ADMINISTERED THIS COURSE: 2 MG
     Dates: start: 20220527, end: 20220527
  3. CYTARABINE [Suspect]
     Active Substance: CYTARABINE
     Indication: Acute lymphocytic leukaemia
     Dosage: TOTAL DOSE ADMINISTERED THIS COURSE: 247.8 MG
     Dates: start: 20220513, end: 20220519
  4. METHOTREXATE SODIUM [Suspect]
     Active Substance: METHOTREXATE SODIUM
     Indication: Acute lymphocytic leukaemia
     Dosage: TOTAL DOSE ADMINISTERED THIS COURSE: 24 ML
     Dates: start: 20220512, end: 20220527
  5. CYCLOPHOSPHAMIDE [Suspect]
     Active Substance: CYCLOPHOSPHAMIDE
     Indication: Acute lymphocytic leukaemia
     Dosage: TOTAL DOSE ADMINISTERED THIS COURSE: 1650 MG
     Dates: start: 20220512, end: 20220512
  6. DEXAMETHASONE [Suspect]
     Active Substance: DEXAMETHASONE
     Indication: Acute lymphocytic leukaemia
     Dosage: TOTAL DOSE ADMINISTERED THIS COURSE: 12 MG
     Dates: start: 20220512, end: 20220512
  7. MERCAPTOPURINE [Suspect]
     Active Substance: MERCAPTOPURINE
     Indication: Acute lymphocytic leukaemia
     Dosage: TOTAL DOSE ADMINISTERED THIS COURSE: 1400 MG
     Dates: start: 20220512, end: 20220525
  8. ONCASPAR [Suspect]
     Active Substance: PEGASPARGASE
     Indication: Acute lymphocytic leukaemia
     Dosage: TOTAL DOSE ADMINISTERED THIS COURSE: 3300 UNIT
     Dates: start: 20220527, end: 20220527

REACTIONS (1)
  - Urinary tract infection [Recovered/Resolved]

NARRATIVE: CASE EVENT DATE: 20220531
